FAERS Safety Report 5041379-X (Version None)
Quarter: 2006Q2

REPORT INFORMATION
  Report Type: 
  Country: None (occurrence: None)
  Receive Date: 20060626
  Receipt Date: 20060616
  Transmission Date: 20061013
  Serious: Yes (Hospitalization)
  Sender: FDA-Public Use
  Company Number: TPA2003A01730

PATIENT
  Age: 71 Year
  Sex: Male

DRUGS (6)
  1. ACTOS [Suspect]
     Indication: DIABETES MELLITUS NON-INSULIN-DEPENDENT
     Dosage: 15 MG, 1 IN 1 D, PER ORAL
     Route: 048
     Dates: start: 20010101
  2. AMARYL [Concomitant]
  3. HYDROCHLOROTHIAZIDE [Concomitant]
  4. DIOVAN [Concomitant]
  5. ZOCOR [Concomitant]
  6. LANTUS [Concomitant]

REACTIONS (10)
  - BLINDNESS [None]
  - CATARACT OPERATION [None]
  - CEREBROVASCULAR ACCIDENT [None]
  - DIABETES MELLITUS INSULIN-DEPENDENT [None]
  - DIABETIC RETINOPATHY [None]
  - MACULAR OEDEMA [None]
  - OEDEMA PERIPHERAL [None]
  - RETINAL ANEURYSM [None]
  - RETINAL EXUDATES [None]
  - RETINAL HAEMORRHAGE [None]
